FAERS Safety Report 7808068-7 (Version None)
Quarter: 2011Q4

REPORT INFORMATION
  Report Type: 
  Country: None (occurrence: None)
  Receive Date: 20111011
  Receipt Date: 20111003
  Transmission Date: 20120403
  Serious: Yes (Other)
  Sender: FDA-Public Use
  Company Number: NL-ABBOTT-10P-114-0663370-00

PATIENT
  Sex: Male

DRUGS (6)
  1. HUMIRA [Suspect]
     Indication: PSORIASIS
     Route: 058
     Dates: start: 20100211, end: 20100601
  2. HYDROCORTISONE [Concomitant]
     Indication: PRODUCT USED FOR UNKNOWN INDICATION
     Dosage: ONCE A DAY 2 TABLETS AND TWICE A DAY 1 TABLET
     Dates: end: 20100719
  3. METFORMIN HCL [Concomitant]
     Indication: TYPE 2 DIABETES MELLITUS
     Dates: end: 20090621
  4. HUMIRA [Concomitant]
     Indication: PSORIASIS
     Route: 058
     Dates: start: 20080501
  5. HYDROCHLOROTHIAZIDE [Concomitant]
     Indication: HYPERTENSION
  6. ADALAT [Concomitant]
     Indication: HYPERTENSION
     Dates: start: 20101001

REACTIONS (1)
  - THYROIDITIS FIBROUS CHRONIC [None]
